FAERS Safety Report 4801758-X (Version None)
Quarter: 2005Q4

REPORT INFORMATION
  Report Type: 
  Country: None (occurrence: None)
  Receive Date: 20051011
  Receipt Date: 20050926
  Transmission Date: 20060501
  Serious: Yes (Life-Threatening)
  Sender: FDA-Public Use
  Company Number: 2005EN000354

PATIENT
  Age: 6 Year
  Sex: Male

DRUGS (2)
  1. ONCASPAR [Suspect]
     Indication: ACUTE LYMPHOCYTIC LEUKAEMIA
  2. BENADRYL [Concomitant]

REACTIONS (2)
  - ADVERSE DRUG REACTION [None]
  - DRUG SPECIFIC ANTIBODY PRESENT [None]
